FAERS Safety Report 12795512 (Version 7)
Quarter: 2017Q2

REPORT INFORMATION
  Report Type: Report from Study
  Country: FR (occurrence: FR)
  Receive Date: 20160929
  Receipt Date: 20170412
  Transmission Date: 20170830
  Serious: Yes (Other)
  Sender: FDA-Public Use
  Company Number: FR-JNJFOC-20160921178

PATIENT
  Age: 70 Year
  Sex: Female
  Weight: 56 kg

DRUGS (2)
  1. IBRUTINIB [Suspect]
     Active Substance: IBRUTINIB
     Indication: OCULAR LYMPHOMA
  2. IBRUTINIB [Suspect]
     Active Substance: IBRUTINIB
     Indication: OCULAR LYMPHOMA
     Dates: start: 20160520, end: 20160921

REACTIONS (1)
  - Hyphaema [Not Recovered/Not Resolved]

NARRATIVE: CASE EVENT DATE: 20160906
